FAERS Safety Report 6037768-7 (Version None)
Quarter: 2009Q1

REPORT INFORMATION
  Report Type: 
  Country: None (occurrence: None)
  Receive Date: 20090113
  Receipt Date: 20081229
  Transmission Date: 20090719
  Serious: Yes (Other)
  Sender: FDA-Public Use
  Company Number: 2008S1021204

PATIENT
  Age: 81 Year
  Sex: Female
  Weight: 137.5 kg

DRUGS (6)
  1. ALEVE [Suspect]
     Indication: OSTEOARTHRITIS
     Dosage: 440 MG; EVERY MORNING; ORAL
     Route: 048
     Dates: start: 20080101
  2. ALEVE [Suspect]
     Indication: OSTEOARTHRITIS
     Dosage: 440 MG; EVERY MORNING; ORAL
     Route: 048
     Dates: start: 20080101
  3. INDAPAMIDE [Suspect]
  4. AMIODARONE HYDROCHLORIDE [Suspect]
     Dates: end: 20080101
  5. IBUPROFEN TABLETS [Suspect]
     Dosage: 400 MG; EVERY MORNING; 200 MG;DAILY
     Dates: start: 20080101
  6. RECLAST [Suspect]
     Dosage: 5 MG; INTRAVENOUS
     Route: 042
     Dates: start: 20081020, end: 20081027

REACTIONS (3)
  - BLOOD CREATININE DECREASED [None]
  - GLOMERULAR FILTRATION RATE DECREASED [None]
  - URINARY TRACT INFECTION [None]
